FAERS Safety Report 4741791-X (Version None)
Quarter: 2005Q3

REPORT INFORMATION
  Report Type: 
  Country: None (occurrence: None)
  Receive Date: 20050810
  Receipt Date: 20050418
  Transmission Date: 20060218
  Serious: Yes (Hospitalization)
  Sender: FDA-Public Use
  Company Number: DE-MERCK-0504DEU00134

PATIENT
  Age: 34 Year
  Sex: Male

DRUGS (2)
  1. VIOXX [Suspect]
     Indication: BACK INJURY
     Route: 048
     Dates: start: 19990101, end: 20010220
  2. VIOXX [Suspect]
     Route: 048
     Dates: start: 20010309, end: 20041001

REACTIONS (5)
  - ACUTE CORONARY SYNDROME [None]
  - CORONARY ARTERY DISEASE [None]
  - HYPERTENSION [None]
  - SENSATION OF FOREIGN BODY [None]
  - TACHYARRHYTHMIA [None]
